FAERS Safety Report 9815647 (Version 1)
Quarter: 2014Q1

REPORT INFORMATION
  Report Type: Spontaneous
  Country: AR (occurrence: None)
  Receive Date: 20140110
  Receipt Date: 20140110
  Transmission Date: 20141002
  Serious: Yes (Congenital Anomaly)
  Sender: FDA-Public Use
  Company Number: FK201400060

PATIENT
  Sex: Female

DRUGS (6)
  1. METHOTREXATE [Suspect]
     Indication: PRODUCT USED FOR UNKNOWN INDICATION
     Dosage: WEEKLY, TRANSPLACENTAL
     Route: 064
  2. FLUCONAZOLE {FLUCONAZOLE} [Concomitant]
  3. ROFECOXIB {ROFECOXIB} [Concomitant]
  4. MEPREDNISONE {MEPREDNISONE} [Concomitant]
  5. RANITIDINE {RANITIDINE} [Concomitant]
  6. ISONIAZID {ISONIAZID} [Concomitant]

REACTIONS (13)
  - Maternal drugs affecting foetus [None]
  - Foetal growth restriction [None]
  - Microcephaly [None]
  - Exophthalmos [None]
  - Delayed fontanelle closure [None]
  - Nasal disorder [None]
  - High arched palate [None]
  - Neck deformity [None]
  - Musculoskeletal deformity [None]
  - Talipes [None]
  - Hand deformity [None]
  - Congenital skin dimples [None]
  - Cerebral ventricle dilatation [None]
